FAERS Safety Report 4366410-6 (Version None)
Quarter: 2004Q2

REPORT INFORMATION
  Report Type: 
  Country: None (occurrence: None)
  Receive Date: 20040527
  Receipt Date: 20040308
  Transmission Date: 20050107
  Serious: No
  Sender: FDA-Public Use
  Company Number: US-BRISTOL-MYERS SQUIBB COMPANY-12528063

PATIENT
  Age: 51 Year
  Sex: Female
  Weight: 117 kg

DRUGS (4)
  1. ERBITUX [Suspect]
     Indication: COLON CANCER METASTATIC
     Route: 042
     Dates: start: 20040305, end: 20040305
  2. DECADRON [Concomitant]
     Indication: PREMEDICATION
     Dates: start: 20040305, end: 20040305
  3. BENADRYL [Concomitant]
     Indication: PREMEDICATION
     Dates: start: 20040305, end: 20040305
  4. ANZEMET [Concomitant]
     Indication: PREMEDICATION
     Dates: start: 20040305, end: 20040305

REACTIONS (8)
  - ANOREXIA [None]
  - DYSPNOEA [None]
  - FATIGUE [None]
  - INCOHERENT [None]
  - MOVEMENT DISORDER [None]
  - NAUSEA [None]
  - ORAL CANDIDIASIS [None]
  - SPEECH DISORDER [None]
